FAERS Safety Report 7082987-4 (Version None)
Quarter: 2010Q4

REPORT INFORMATION
  Report Type: 
  Country: None (occurrence: None)
  Receive Date: 20101104
  Receipt Date: 20101015
  Transmission Date: 20110411
  Serious: Yes (Hospitalization)
  Sender: FDA-Public Use
  Company Number: US-BAYER-201015999NA

PATIENT
  Age: 39 Year
  Sex: Female
  Weight: 65 kg

DRUGS (16)
  1. YAZ [Suspect]
     Indication: PRODUCT USED FOR UNKNOWN INDICATION
     Route: 048
  2. YASMIN [Suspect]
     Indication: PREMENSTRUAL SYNDROME
     Dates: start: 20000101, end: 20100101
  3. COUMADIN [Concomitant]
     Indication: THROMBOSIS
     Dates: start: 20031101
  4. LOVENOX [Concomitant]
     Indication: UNEVALUABLE EVENT
     Dates: start: 20080101
  5. NEXIUM [Concomitant]
     Indication: PROPHYLAXIS AGAINST GASTROINTESTINAL ULCER
     Dates: start: 20030101
  6. CYMBALTA [Concomitant]
     Indication: PAIN
     Dates: start: 20050101
  7. VITAMIN D [Concomitant]
     Indication: SUPPLEMENTATION THERAPY
     Dates: start: 20060101
  8. ZANAFLEX [Concomitant]
     Indication: MUSCLE SPASMS
     Dates: start: 20060101
  9. METANEX [Concomitant]
     Indication: PAIN
     Dates: start: 20080101
  10. OSCAL [Concomitant]
     Indication: BONE DISORDER
     Dates: start: 20030101
  11. ACTONEL [Concomitant]
     Indication: BONE DISORDER
     Dates: start: 20030101
  12. VALTREX [Concomitant]
     Indication: HERPES ZOSTER
     Dates: start: 20050101
  13. PREDNISONE [Concomitant]
     Indication: MUSCLE DISORDER
     Dates: start: 20030101
  14. FIORICET [Concomitant]
     Indication: MIGRAINE
     Dates: start: 20030901
  15. COMPAZINE [Concomitant]
     Indication: NAUSEA
     Dates: start: 20030101
  16. TOPAMAX [Concomitant]
     Indication: TREMOR
     Dates: start: 20100101

REACTIONS (1)
  - PULMONARY EMBOLISM [None]
